FAERS Safety Report 7058770-2 (Version None)
Quarter: 2010Q4

REPORT INFORMATION
  Report Type: 
  Country: None (occurrence: None)
  Receive Date: 20101022
  Receipt Date: 20101014
  Transmission Date: 20110411
  Serious: Yes (Other)
  Sender: FDA-Public Use
  Company Number: JP-ABBOTT-10P-087-0679303-00

PATIENT
  Age: 70 Year
  Sex: Male

DRUGS (2)
  1. LUEPLIN SR FOR INJECTION KIT 11.25 [Suspect]
     Indication: PROSTATE CANCER
     Route: 058
     Dates: start: 20071001
  2. CASODEX [Suspect]
     Indication: PRODUCT USED FOR UNKNOWN INDICATION
     Route: 048

REACTIONS (1)
  - INTERSTITIAL LUNG DISEASE [None]
